FAERS Safety Report 4700561-9 (Version None)
Quarter: 2005Q2

REPORT INFORMATION
  Report Type: 
  Country: None (occurrence: None)
  Receive Date: 20050627
  Receipt Date: 20050627
  Transmission Date: 20051028
  Serious: Yes (Life-Threatening)
  Sender: FDA-Public Use
  Company Number: None

PATIENT
  Sex: Female
  Weight: 83.4619 kg

DRUGS (1)
  1. BUSPAR [Suspect]

REACTIONS (3)
  - EYE SWELLING [None]
  - PHARMACEUTICAL PRODUCT COMPLAINT [None]
  - RASH [None]
